FAERS Safety Report 5774736-4 (Version None)
Quarter: 2008Q2

REPORT INFORMATION
  Report Type: 
  Country: None (occurrence: None)
  Receive Date: 20080616
  Receipt Date: 20080616
  Transmission Date: 20081010
  Serious: Yes (Other)
  Sender: FDA-Public Use
  Company Number: None

PATIENT
  Age: 67 Year
  Sex: Female
  Weight: 88.4514 kg

DRUGS (2)
  1. DOXYCYCLINE HCL [Suspect]
     Indication: BRONCHITIS
     Dosage: 50 MG 2X DAY BY MOUTH
     Route: 048
     Dates: start: 20080329, end: 20080409
  2. PROAIR HFA [Concomitant]

REACTIONS (2)
  - MUSCLE SPASMS [None]
  - PAIN IN EXTREMITY [None]
